FAERS Safety Report 9287967 (Version 1)
Quarter: 2013Q2

REPORT INFORMATION
  Report Type: Spontaneous
  Country: US (occurrence: None)
  Receive Date: 20130513
  Receipt Date: 20130513
  Transmission Date: 20140414
  Serious: Yes (Other)
  Sender: FDA-Public Use
  Company Number: None

PATIENT
  Age: 55 Year
  Sex: Female

DRUGS (1)
  1. PLAVIX [Suspect]
     Indication: ANGINA PECTORIS

REACTIONS (3)
  - Headache [None]
  - Dizziness [None]
  - Myalgia [None]
